FAERS Safety Report 20563882 (Version 1)
Quarter: 2022Q1

REPORT INFORMATION
  Report Type: Spontaneous
  Country: CA (occurrence: CA)
  Receive Date: 20220308
  Receipt Date: 20220308
  Transmission Date: 20220423
  Serious: No
  Sender: FDA-Public Use
  Company Number: CA-ALKEM LABORATORIES LIMITED-CA-ALKEM-2022-00749

PATIENT

DRUGS (2)
  1. CINACALCET [Suspect]
     Active Substance: CINACALCET
     Indication: Parathyroid tumour
     Dosage: UNK
     Route: 048
  2. CINACALCET [Suspect]
     Active Substance: CINACALCET
     Indication: Hyperthyroidism

REACTIONS (2)
  - Accidental overdose [Unknown]
  - Gastrointestinal disorder [Unknown]
